FAERS Safety Report 16083574 (Version 3)
Quarter: 2019Q3

REPORT INFORMATION
  Report Type: Report from Study
  Country: US (occurrence: US)
  Receive Date: 20190318
  Receipt Date: 20190816
  Transmission Date: 20191004
  Serious: Yes (Death)
  Sender: FDA-Public Use
  Company Number: US-ROCHE-2274273

PATIENT
  Age: 58 Year
  Sex: Female
  Weight: 42.7 kg

DRUGS (19)
  1. TRAMADOL. [Concomitant]
     Active Substance: TRAMADOL
  2. PROCHLORPERAZINE MALEATE. [Concomitant]
     Active Substance: PROCHLORPERAZINE MALEATE
  3. LORAZEPAM. [Concomitant]
     Active Substance: LORAZEPAM
  4. TRASTUZUMAB. [Suspect]
     Active Substance: TRASTUZUMAB
     Dosage: OVER 30 MINUTES ON DAY 1.
     Route: 042
     Dates: start: 20190208
  5. VITAMIN C [Concomitant]
     Active Substance: ASCORBIC ACID
  6. BENZONATATE. [Concomitant]
     Active Substance: BENZONATATE
  7. PERTUZUMAB. [Suspect]
     Active Substance: PERTUZUMAB
     Dosage: CYCLE 2: OVER 30- 60 MINUTES ON DAY 1
     Route: 042
     Dates: start: 20190208
  8. NYSTATIN. [Concomitant]
     Active Substance: NYSTATIN
  9. MELATONIN [Concomitant]
     Active Substance: MELATONIN
  10. PERTUZUMAB. [Suspect]
     Active Substance: PERTUZUMAB
     Indication: NEOPLASM MALIGNANT
     Dosage: OVER 60 MINUTES ON DAY 1.
     Route: 042
     Dates: start: 20190208, end: 20190208
  11. TRASTUZUMAB. [Suspect]
     Active Substance: TRASTUZUMAB
     Indication: NEOPLASM MALIGNANT
     Dosage: OVER 90 MINUTES ON DAY 1.
     Route: 042
     Dates: start: 20190208
  12. PRILOCAINE [Concomitant]
     Active Substance: PRILOCAINE
  13. MAGNESIUM OXIDE. [Concomitant]
     Active Substance: MAGNESIUM OXIDE
  14. LIDOCAINE. [Concomitant]
     Active Substance: LIDOCAINE
  15. CANNABIDIOL [Concomitant]
     Active Substance: CANNABIDIOL
  16. TRASTUZUMAB. [Suspect]
     Active Substance: TRASTUZUMAB
     Route: 042
     Dates: start: 20190208
  17. IBUPROFEN. [Concomitant]
     Active Substance: IBUPROFEN
  18. TRIAMCINOLONE [Concomitant]
     Active Substance: TRIAMCINOLONE
  19. ONDANSETRON [Concomitant]
     Active Substance: ONDANSETRON

REACTIONS (1)
  - Sudden death [Fatal]

NARRATIVE: CASE EVENT DATE: 20190209
